APPROVED DRUG PRODUCT: CORTEF ACETATE
Active Ingredient: HYDROCORTISONE ACETATE
Strength: 1%
Dosage Form/Route: OINTMENT;TOPICAL
Application: N008917 | Product #002
Applicant: PHARMACIA AND UPJOHN CO
Approved: Approved Prior to Jan 1, 1982 | RLD: No | RS: No | Type: DISCN